FAERS Safety Report 5220898-7 (Version None)
Quarter: 2007Q1

REPORT INFORMATION
  Report Type: 
  Country: None (occurrence: None)
  Receive Date: 20070126
  Receipt Date: 20070117
  Transmission Date: 20070707
  Serious: Yes (Other)
  Sender: FDA-Public Use
  Company Number: FR-GLAXOSMITHKLINE-B0455173A

PATIENT
  Age: 91 Year
  Sex: Male

DRUGS (2)
  1. AVODART [Suspect]
     Dosage: .5MG PER DAY
     Route: 048
     Dates: start: 20050101
  2. PROSCAR [Concomitant]

REACTIONS (3)
  - SCROTAL DISORDER [None]
  - TESTICULAR SWELLING [None]
  - URINARY BLADDER POLYP [None]
